FAERS Safety Report 7372550-X (Version None)
Quarter: 2011Q1

REPORT INFORMATION
  Report Type: 
  Country: None (occurrence: None)
  Receive Date: 20110316
  Receipt Date: 20110301
  Transmission Date: 20110831
  Serious: Yes (Hospitalization)
  Sender: FDA-Public Use
  Company Number: 027904

PATIENT
  Age: 19 Year
  Sex: Female

DRUGS (7)
  1. LACOSAMIDE [Suspect]
     Dosage: (100 MG BID)
     Dates: start: 20100801
  2. AZATHIOPRINE [Concomitant]
  3. MIDAZOLAM [Concomitant]
  4. LAMOTRIGINE [Concomitant]
  5. CLOBAZAM [Concomitant]
  6. PHENYTOIN [Concomitant]
  7. LEVETIRACETAM [Suspect]
     Dosage: (500 MG BID) ; (1500 MG BID)

REACTIONS (3)
  - FACIAL BONES FRACTURE [None]
  - CEREBRAL ATROPHY [None]
  - GRAND MAL CONVULSION [None]
